FAERS Safety Report 7948307-5 (Version None)
Quarter: 2011Q4

REPORT INFORMATION
  Report Type: 
  Country: None (occurrence: None)
  Receive Date: 20111130
  Receipt Date: 20111116
  Transmission Date: 20120403
  Serious: No
  Sender: FDA-Public Use
  Company Number: US-PFIZER INC-2011282382

PATIENT
  Sex: Female
  Weight: 72.6 kg

DRUGS (4)
  1. MULTI-VITAMINS [Concomitant]
     Indication: VITAMIN SUPPLEMENTATION
     Dosage: UNK
  2. LEVOXYL [Suspect]
     Indication: AUTOIMMUNE THYROIDITIS
     Dosage: HALF TABLET OF 125UG WEEKLY
     Route: 048
  3. ASPIRIN [Concomitant]
     Indication: PREDISPOSITION TO DISEASE
     Dosage: UNK
  4. LEVOXYL [Suspect]
     Dosage: 137 UG, DAILY
     Route: 048
     Dates: start: 20110101

REACTIONS (2)
  - ALOPECIA [None]
  - BLOOD IRON DECREASED [None]
